FAERS Safety Report 12611931 (Version 1)
Quarter: 2016Q3

REPORT INFORMATION
  Report Type: Report from Study
  Country: CA (occurrence: CA)
  Receive Date: 20160801
  Receipt Date: 20160801
  Transmission Date: 20161109
  Serious: Yes (Hospitalization)
  Sender: FDA-Public Use
  Company Number: CA-JNJFOC-20160726182

PATIENT
  Age: 40 Year
  Sex: Female
  Weight: 71 kg

DRUGS (4)
  1. REMICADE [Suspect]
     Active Substance: INFLIXIMAB
     Indication: COLITIS ULCERATIVE
     Route: 042
     Dates: start: 20151022
  2. IMURAN [Concomitant]
     Active Substance: AZATHIOPRINE
     Route: 048
  3. DILAUDID [Concomitant]
     Active Substance: HYDROMORPHONE HYDROCHLORIDE
     Route: 065
  4. TRAMADOL. [Concomitant]
     Active Substance: TRAMADOL
     Route: 065

REACTIONS (3)
  - General physical health deterioration [Unknown]
  - Meningitis viral [Recovering/Resolving]
  - Haematochezia [Unknown]

NARRATIVE: CASE EVENT DATE: 201607
